FAERS Safety Report 8309429-2 (Version None)
Quarter: 2012Q2

REPORT INFORMATION
  Report Type: 
  Country: None (occurrence: None)
  Receive Date: 20120424
  Receipt Date: 20120424
  Transmission Date: 20120825
  Serious: No
  Sender: FDA-Public Use
  Company Number: None

PATIENT
  Sex: Female
  Weight: 77.1115 kg

DRUGS (2)
  1. ATORVASTATIN [Suspect]
     Indication: HYPERLIPIDAEMIA
     Dosage: 20MG DAILY PO
     Route: 048
     Dates: start: 20120308
  2. ATORVASTATIN [Suspect]
     Indication: HYPERLIPIDAEMIA
     Dosage: 20MG DAILY PO
     Route: 048
     Dates: start: 20120217

REACTIONS (3)
  - APHAGIA [None]
  - MUSCULAR WEAKNESS [None]
  - MUSCLE TIGHTNESS [None]
